FAERS Safety Report 20039487 (Version 2)
Quarter: 2022Q1

REPORT INFORMATION
  Report Type: Spontaneous
  Country: US (occurrence: US)
  Receive Date: 20211105
  Receipt Date: 20220222
  Transmission Date: 20220423
  Serious: Yes (Other)
  Sender: FDA-Public Use
  Company Number: US-Covis Pharma GmbH-2021COV24609

PATIENT
  Age: 0 Year
  Sex: Female

DRUGS (1)
  1. MAKENA [Suspect]
     Active Substance: HYDROXYPROGESTERONE CAPROATE
     Indication: Foetal exposure during pregnancy
     Route: 064
     Dates: start: 20210614, end: 20211018

REACTIONS (1)
  - Premature baby [Recovered/Resolved]

NARRATIVE: CASE EVENT DATE: 20211022
